FAERS Safety Report 5075320-0 (Version None)
Quarter: 2006Q3

REPORT INFORMATION
  Report Type: 
  Country: None (occurrence: None)
  Receive Date: 20060804
  Receipt Date: 20060724
  Transmission Date: 20061208
  Serious: Yes (Hospitalization)
  Sender: FDA-Public Use
  Company Number: 2006090941

PATIENT
  Age: 72 Year
  Sex: Female

DRUGS (3)
  1. LYRICA [Suspect]
     Indication: POST HERPETIC NEURALGIA
     Dosage: 150 MG (75 MG, 2 IN 1 D), ORAL
     Route: 048
     Dates: start: 20060601
  2. DEXTROPROPOXYPHENE (DEXTROPROPOXYPHENE) [Concomitant]
  3. AMITRIPTYLINE (AMITRIPTYLINE) [Concomitant]

REACTIONS (1)
  - SEDATION [None]
